FAERS Safety Report 6853778-1 (Version None)
Quarter: 2010Q3

REPORT INFORMATION
  Report Type: 
  Country: None (occurrence: None)
  Receive Date: 20100717
  Receipt Date: 20071218
  Transmission Date: 20110219
  Serious: No
  Sender: FDA-Public Use
  Company Number: US-PFIZER INC-2007107265

PATIENT
  Sex: Female
  Weight: 56.7 kg

DRUGS (1)
  1. CHANTIX [Suspect]
     Indication: SMOKING CESSATION THERAPY
     Dates: start: 20071203

REACTIONS (6)
  - DISTURBANCE IN ATTENTION [None]
  - FEELING JITTERY [None]
  - HYPOAESTHESIA [None]
  - IRRITABILITY [None]
  - PARAESTHESIA [None]
  - THINKING ABNORMAL [None]
